FAERS Safety Report 4279325-9 (Version None)
Quarter: 2004Q1

REPORT INFORMATION
  Report Type: 
  Country: None (occurrence: None)
  Receive Date: 20040123
  Receipt Date: 20040113
  Transmission Date: 20041129
  Serious: Yes (Hospitalization)
  Sender: FDA-Public Use
  Company Number: 2003126522

PATIENT
  Age: 4 Year
  Sex: Female
  Weight: 21.7727 kg

DRUGS (1)
  1. BENADRYL [Suspect]
     Indication: ACCIDENTAL EXPOSURE
     Dosage: 17 (12.5 MG) TABS ONCE, ORAL
     Route: 048
     Dates: start: 20031123, end: 20031123

REACTIONS (3)
  - ACCIDENTAL OVERDOSE [None]
  - HEART RATE INCREASED [None]
  - MYDRIASIS [None]
